FAERS Safety Report 22626463 (Version 3)
Quarter: 2025Q1

REPORT INFORMATION
  Report Type: Spontaneous
  Country: US (occurrence: US)
  Receive Date: 20230621
  Receipt Date: 20250109
  Transmission Date: 20250408
  Serious: Yes (Hospitalization)
  Sender: BIOMARIN
  Company Number: US-SA-2023SA180439

PATIENT

DRUGS (2)
  1. LARONIDASE [Suspect]
     Active Substance: LARONIDASE
     Indication: Mucopolysaccharidosis I
     Dosage: 8.7 (UNITS NOT REPORTED), QW
     Route: 042
     Dates: start: 20221219
  2. LARONIDASE [Suspect]
     Active Substance: LARONIDASE
     Dosage: 4.38 (UNITS NOT REPORTED), QW
     Route: 042

REACTIONS (6)
  - Disorientation [Recovering/Resolving]
  - Somnolence [Recovering/Resolving]
  - Diarrhoea [Recovering/Resolving]
  - Drug hypersensitivity [Recovering/Resolving]
  - Pallor [Recovering/Resolving]
  - Bone marrow transplant [Recovering/Resolving]

NARRATIVE: CASE EVENT DATE: 20230601
